FAERS Safety Report 6378372-0 (Version None)
Quarter: 2009Q3

REPORT INFORMATION
  Report Type: 
  Country: None (occurrence: None)
  Receive Date: 20090925
  Receipt Date: 20090716
  Transmission Date: 20100115
  Serious: Yes (Other)
  Sender: FDA-Public Use
  Company Number: US-ASTRAZENECA-2009UW12000

PATIENT
  Age: 450 Month
  Sex: Male
  Weight: 135.6 kg

DRUGS (5)
  1. SEROQUEL [Suspect]
     Indication: SLEEP DISORDER
     Dosage: 50 MG TO 600 MG
     Route: 048
     Dates: start: 20030101
  2. SEROQUEL [Suspect]
     Indication: BIPOLAR DISORDER
     Dosage: 50 MG TO 600 MG
     Route: 048
     Dates: start: 20030101
  3. SEROQUEL [Suspect]
     Indication: INSOMNIA
     Dosage: 50 MG TO 600 MG
     Route: 048
     Dates: start: 20030101
  4. SEROQUEL [Suspect]
     Indication: DEPRESSION
     Dosage: 50 MG TO 600 MG
     Route: 048
     Dates: start: 20030101
  5. LEXAPRO [Concomitant]

REACTIONS (3)
  - CEREBROVASCULAR ACCIDENT [None]
  - OBESITY [None]
  - TYPE 2 DIABETES MELLITUS [None]
